FAERS Safety Report 6045007-6 (Version None)
Quarter: 2009Q1

REPORT INFORMATION
  Report Type: 
  Country: None (occurrence: None)
  Receive Date: 20090116
  Receipt Date: 20090116
  Transmission Date: 20090719
  Serious: No
  Sender: FDA-Public Use
  Company Number: None

PATIENT
  Sex: Male
  Weight: 55 kg

DRUGS (3)
  1. FLUOROURACIL [Suspect]
     Indication: LARYNGEAL CANCER
     Dosage: 600MG/M2 IV X 5 DAYS
     Route: 042
     Dates: start: 20090104, end: 20090109
  2. HYDREA [Suspect]
     Indication: LARYNGEAL CANCER
     Dosage: 500MG PO BID
     Route: 048
     Dates: start: 20090104, end: 20090109
  3. CETUXIMAB [Suspect]
     Indication: LARYNGEAL CANCER
     Dosage: 250MG/M2 IV QW
     Route: 042
     Dates: start: 20090104, end: 20090109

REACTIONS (2)
  - BACTERIA BLOOD IDENTIFIED [None]
  - STAPHYLOCOCCAL INFECTION [None]
